FAERS Safety Report 17846933 (Version 1)
Quarter: 2020Q2

REPORT INFORMATION
  Report Type: Report from Study
  Country: AR (occurrence: AR)
  Receive Date: 20200601
  Receipt Date: 20200601
  Transmission Date: 20200714
  Serious: Yes (Hospitalization, Other)
  Sender: FDA-Public Use
  Company Number: NVSC2020AR150652

PATIENT
  Sex: Male

DRUGS (2)
  1. OMNITROPE [Suspect]
     Active Substance: SOMATROPIN
     Indication: GROWTH HORMONE DEFICIENCY
     Dosage: 10 MG
     Route: 065
     Dates: start: 20161104, end: 201911
  2. TOPIRAMATE. [Suspect]
     Active Substance: TOPIRAMATE
     Indication: LEUKAEMIA
     Route: 065

REACTIONS (3)
  - Renal disorder [Recovering/Resolving]
  - Leukaemia [Recovering/Resolving]
  - Nephrolithiasis [Recovering/Resolving]
